FAERS Safety Report 25948733 (Version 1)
Quarter: 2025Q4

REPORT INFORMATION
  Report Type: Spontaneous
  Country: EU (occurrence: EU)
  Receive Date: 20251022
  Receipt Date: 20251022
  Transmission Date: 20260118
  Serious: Yes (Hospitalization, Other)
  Sender: AMGEN
  Company Number: EU-AMGEN-ESPSP2025205285

PATIENT

DRUGS (2)
  1. BEVACIZUMAB [Suspect]
     Active Substance: BEVACIZUMAB
     Indication: Hepatocellular carcinoma
     Dosage: UNK
     Route: 065
  2. ATEZOLIZUMAB [Concomitant]
     Active Substance: ATEZOLIZUMAB
     Indication: Hepatocellular carcinoma
     Dosage: UNK

REACTIONS (11)
  - Oesophageal varices haemorrhage [Unknown]
  - Lower gastrointestinal haemorrhage [Unknown]
  - Haematuria [Unknown]
  - Fournier^s gangrene [Unknown]
  - Hepatocellular carcinoma [Unknown]
  - Hypertension [Unknown]
  - Proteinuria [Unknown]
  - Peripheral ischaemia [Unknown]
  - Epistaxis [Unknown]
  - Haemoptysis [Unknown]
  - Off label use [Unknown]
